FAERS Safety Report 9310817 (Version 1)
Quarter: 2013Q2

REPORT INFORMATION
  Report Type: Spontaneous
  Country: FR (occurrence: FR)
  Receive Date: 20130528
  Receipt Date: 20130528
  Transmission Date: 20140414
  Serious: Yes (Life-Threatening)
  Sender: FDA-Public Use
  Company Number: FR-ROCHE-1227696

PATIENT
  Age: 39 Year
  Sex: Female

DRUGS (11)
  1. CELLCEPT [Suspect]
     Indication: GRAFT VERSUS HOST DISEASE
     Route: 042
     Dates: start: 20130320
  2. INEXIUM [Suspect]
     Indication: GASTROOESOPHAGEAL REFLUX DISEASE
     Route: 048
     Dates: start: 20130318, end: 20130401
  3. NOXAFIL [Suspect]
     Indication: GASTROINTESTINAL CANDIDIASIS
     Route: 048
     Dates: start: 20130314, end: 20130328
  4. FOSCAVIR [Suspect]
     Indication: CYTOMEGALOVIRUS INFECTION
     Route: 042
     Dates: start: 20130319, end: 20130329
  5. CANCIDAS [Concomitant]
     Indication: GASTROINTESTINAL CANDIDIASIS
     Route: 065
  6. CYMEVAN [Concomitant]
     Indication: CYTOMEGALOVIRUS INFECTION
     Route: 065
     Dates: end: 20130313
  7. CYMEVAN [Concomitant]
     Route: 065
     Dates: start: 20130330
  8. TAZOCILLINE [Concomitant]
     Indication: PYELONEPHRITIS
     Route: 065
     Dates: start: 20130212
  9. SOLU-MEDROL [Concomitant]
  10. CICLOSPORINE [Concomitant]
     Route: 065
     Dates: end: 20130320
  11. SOLIRIS [Concomitant]
     Dosage: MOST RECENT DOSE: 05/APR/2013
     Route: 065
     Dates: start: 20130327

REACTIONS (1)
  - Toxic epidermal necrolysis [Unknown]
